FAERS Safety Report 6264566-1 (Version None)
Quarter: 2009Q3

REPORT INFORMATION
  Report Type: 
  Country: None (occurrence: None)
  Receive Date: 20090710
  Receipt Date: 20090703
  Transmission Date: 20100115
  Serious: Yes (Other)
  Sender: FDA-Public Use
  Company Number: HU-BAXTER-2009BH011215

PATIENT
  Age: 80 Year
  Sex: Male

DRUGS (7)
  1. LACTATED RINGER'S [Suspect]
     Indication: DEHYDRATION
     Route: 042
     Dates: start: 20090630, end: 20090630
  2. RANITIDIN-B [Concomitant]
     Indication: GASTRIC ULCER
     Route: 048
  3. NITROMINT [Concomitant]
     Indication: ANGINA PECTORIS
     Route: 048
  4. LUCETAM [Concomitant]
     Indication: MEMORY IMPAIRMENT
     Route: 048
  5. ADEXOR [Concomitant]
     Indication: ANGINA PECTORIS
     Route: 048
  6. FUROSEMIDE [Concomitant]
     Indication: HYPERTENSION
     Route: 048
     Dates: start: 20090701, end: 20090701
  7. KALIUM-R [Concomitant]
     Indication: ELECTROLYTE SUBSTITUTION THERAPY
     Route: 048

REACTIONS (1)
  - CHILLS [None]
